FAERS Safety Report 7023135-6 (Version None)
Quarter: 2010Q3

REPORT INFORMATION
  Report Type: 
  Country: None (occurrence: None)
  Receive Date: 20100930
  Receipt Date: 20100927
  Transmission Date: 20110219
  Serious: Yes (Life-Threatening)
  Sender: FDA-Public Use
  Company Number: PHHY2010US64347

PATIENT

DRUGS (1)
  1. RECLAST [Suspect]

REACTIONS (1)
  - FEELING ABNORMAL [None]
